FAERS Safety Report 17428470 (Version 1)
Quarter: 2020Q1

REPORT INFORMATION
  Report Type: Spontaneous
  Country: US (occurrence: US)
  Receive Date: 20200217
  Receipt Date: 20200217
  Transmission Date: 20200409
  Serious: Yes (Other)
  Sender: FDA-Public Use
  Company Number: US-MYLANLABS-2020M1017573

PATIENT
  Age: 56 Year
  Sex: Female

DRUGS (1)
  1. CYTARABINE. [Suspect]
     Active Substance: CYTARABINE
     Indication: ACUTE MYELOID LEUKAEMIA
     Dosage: ^7+3^ REGIMEN FOLLOWED BY HIGH DOSE OF CYTARABINE
     Route: 065

REACTIONS (1)
  - Drug ineffective [Unknown]
